FAERS Safety Report 18198466 (Version 1)
Quarter: 2020Q3

REPORT INFORMATION
  Report Type: Spontaneous
  Country: DK (occurrence: DK)
  Receive Date: 20200826
  Receipt Date: 20200826
  Transmission Date: 20201103
  Serious: Yes (Other)
  Sender: FDA-Public Use
  Company Number: DK-009507513-2008DNK011847

PATIENT
  Age: 49 Year
  Sex: Female

DRUGS (1)
  1. KEYTRUDA [Suspect]
     Active Substance: PEMBROLIZUMAB
     Indication: LUNG CANCER METASTATIC
     Dosage: DOSE: VARYING INTERVALS (FROM 12 DAYS TO 6 WEEKS)STRENGTH: 50 MG
     Route: 042
     Dates: start: 20181011, end: 20190417

REACTIONS (4)
  - Cough [Unknown]
  - Pneumonitis chemical [Unknown]
  - Addison^s disease [Unknown]
  - Dyspnoea [Unknown]

NARRATIVE: CASE EVENT DATE: 2018
